FAERS Safety Report 7546421-X (Version None)
Quarter: 2011Q2

REPORT INFORMATION
  Report Type: 
  Country: None (occurrence: None)
  Receive Date: 20110614
  Receipt Date: 20110118
  Transmission Date: 20111010
  Serious: Yes (Hospitalization, Other)
  Sender: FDA-Public Use
  Company Number: US-BAYER-201034589NA

PATIENT
  Age: 30 Year
  Sex: Female
  Weight: 81.633 kg

DRUGS (5)
  1. SPIRONOLACTONE [Concomitant]
     Dosage: UNK
     Dates: start: 19970101, end: 20040101
  2. YASMIN [Suspect]
     Indication: PRODUCT USED FOR UNKNOWN INDICATION
     Dosage: UNK
     Dates: start: 20040501, end: 20090601
  3. HYDROCODONE BITARTRATE [Concomitant]
     Indication: ABDOMINAL PAIN
     Dosage: UNK UNK, PRN
  4. IBUPROFEN [Concomitant]
     Dosage: UNK UNK, PRN
  5. DROSPIRENONE AND ETHINYL ESTRADIOL [Suspect]
     Indication: PRODUCT USED FOR UNKNOWN INDICATION
     Dosage: UNK
     Dates: start: 20040501, end: 20090601

REACTIONS (2)
  - GALLBLADDER DISORDER [None]
  - CHOLECYSTITIS CHRONIC [None]
